FAERS Safety Report 6430342-X (Version None)
Quarter: 2009Q4

REPORT INFORMATION
  Report Type: 
  Country: None (occurrence: None)
  Receive Date: 20091106
  Receipt Date: 20091026
  Transmission Date: 20100525
  Serious: Yes (Other)
  Sender: FDA-Public Use
  Company Number: TW-PFIZER INC-2009290697

PATIENT
  Age: 38 Year
  Sex: Female

DRUGS (5)
  1. TAMOXIFEN CITRATE [Suspect]
     Indication: BREAST CANCER
  2. EPIRUBICIN HCL [Suspect]
     Indication: BREAST CANCER
  3. ENDOXAN [Suspect]
     Indication: BREAST CANCER
  4. TAXOTERE [Suspect]
     Indication: BREAST CANCER
  5. ZOLADEX [Suspect]
     Indication: BREAST CANCER

REACTIONS (2)
  - OSTEOMYELITIS [None]
  - OSTEONECROSIS [None]
